FAERS Safety Report 9550572 (Version 2)
Quarter: 2014Q2

REPORT INFORMATION
  Report Type: Spontaneous
  Country: US (occurrence: US)
  Receive Date: 20130924
  Receipt Date: 20140402
  Transmission Date: 20141212
  Serious: No
  Sender: FDA-Public Use
  Company Number: US-SANOFI-AVENTIS-2013SA035959

PATIENT
  Age: 54 Year
  Sex: Female
  Weight: 76.2 kg

DRUGS (12)
  1. AUBAGIO [Suspect]
     Indication: MULTIPLE SCLEROSIS
     Route: 048
     Dates: start: 20130111
  2. TENORMIN [Concomitant]
     Indication: HYPERTENSION
  3. LOSARTAN [Concomitant]
     Indication: HYPERTENSION
  4. CARDIZEM [Concomitant]
     Indication: HYPERTENSION
  5. LASIX [Concomitant]
     Indication: HYPERTENSION
  6. LASIX [Concomitant]
     Indication: SWELLING
  7. REPAGLINIDE [Concomitant]
     Indication: DIABETES MELLITUS
  8. METFORMIN [Concomitant]
     Indication: DIABETES MELLITUS
  9. HUMALOG [Concomitant]
     Indication: DIABETES MELLITUS
  10. PROTONIX [Concomitant]
     Indication: GASTROOESOPHAGEAL REFLUX DISEASE
  11. CYMBALTA [Concomitant]
     Indication: DEPRESSION
  12. SYNTHROID [Concomitant]
     Indication: HYPOTHYROIDISM

REACTIONS (1)
  - Alopecia [Recovering/Resolving]
